FAERS Safety Report 6156444-3 (Version None)
Quarter: 2009Q2

REPORT INFORMATION
  Report Type: 
  Country: None (occurrence: None)
  Receive Date: 20090413
  Receipt Date: 20090401
  Transmission Date: 20091009
  Serious: No
  Sender: FDA-Public Use
  Company Number: 20096523

PATIENT
  Sex: Male

DRUGS (1)
  1. LIORESAL [Suspect]
     Indication: MUSCLE SPASTICITY
     Dosage: 440 MCG, DAILY, INTRATHECAL
     Route: 037

REACTIONS (13)
  - CATHETER RELATED COMPLICATION [None]
  - CONVULSION [None]
  - DEHYDRATION [None]
  - DISEASE PROGRESSION [None]
  - FALL [None]
  - GAIT DISTURBANCE [None]
  - HYPERTENSION [None]
  - MULTIPLE SCLEROSIS [None]
  - MUSCULAR WEAKNESS [None]
  - POSTURE ABNORMAL [None]
  - TACHYCARDIA [None]
  - URINARY TRACT INFECTION [None]
  - WHITE BLOOD CELL COUNT INCREASED [None]
